FAERS Safety Report 18881659 (Version 1)
Quarter: 2021Q1

REPORT INFORMATION
  Report Type: Spontaneous
  Country: US (occurrence: US)
  Receive Date: 20210212
  Receipt Date: 20210212
  Transmission Date: 20210420
  Serious: No
  Sender: FDA-Public Use
  Company Number: US-TEVA-2020-US-1865411

PATIENT
  Age: 56 Year
  Sex: Female

DRUGS (1)
  1. AJOVY [Suspect]
     Active Substance: FREMANEZUMAB-VFRM
     Dosage: 225 MG / 1.5 ML
     Route: 065
     Dates: start: 20201229

REACTIONS (6)
  - Drug dose omission by device [Unknown]
  - Incorrect route of product administration [Unknown]
  - Headache [Unknown]
  - Accidental exposure to product [Unknown]
  - Drug tolerance [Unknown]
  - Device leakage [Unknown]

NARRATIVE: CASE EVENT DATE: 202012
